FAERS Safety Report 8481243-7 (Version None)
Quarter: 2012Q3

REPORT INFORMATION
  Report Type: 
  Country: None (occurrence: None)
  Receive Date: 20120702
  Receipt Date: 20120623
  Transmission Date: 20120928
  Serious: Yes (Other)
  Sender: FDA-Public Use
  Company Number: BR-JNJFOC-20120601419

PATIENT
  Age: 50 Year
  Sex: Female
  Weight: 92 kg

DRUGS (8)
  1. HALDOL [Suspect]
     Indication: BIPOLAR DISORDER
     Route: 065
     Dates: start: 19870101
  2. ZYPREXA [Concomitant]
     Indication: BIPOLAR DISORDER
     Route: 065
  3. LITHIUM CARBONATE [Concomitant]
     Indication: BIPOLAR DISORDER
     Route: 065
  4. ALPRAZOLAM [Concomitant]
     Indication: BIPOLAR DISORDER
     Route: 065
  5. RISPERIDONE [Concomitant]
     Indication: BIPOLAR DISORDER
     Route: 065
  6. PLANTABEN [Concomitant]
     Indication: PRODUCT USED FOR UNKNOWN INDICATION
     Route: 065
     Dates: start: 20120101
  7. CLONAZEPAM [Concomitant]
     Indication: BIPOLAR DISORDER
     Route: 065
  8. SLOW-K [Concomitant]
     Indication: MUSCLE SPASMS
     Route: 065
     Dates: start: 20060101

REACTIONS (10)
  - GLUCOSE TOLERANCE IMPAIRED [None]
  - GASTRIC DISORDER [None]
  - HEPATOMEGALY [None]
  - HYPERTENSION [None]
  - HYPOAESTHESIA [None]
  - BACK PAIN [None]
  - GLAUCOMA [None]
  - GASTROINTESTINAL INFECTION [None]
  - WEIGHT INCREASED [None]
  - FLUID RETENTION [None]
